FAERS Safety Report 9248771 (Version 1)
Quarter: 2013Q2

REPORT INFORMATION
  Report Type: Spontaneous
  Country: US (occurrence: None)
  Receive Date: 20130419
  Receipt Date: 20130419
  Transmission Date: 20140414
  Serious: Yes (Other)
  Sender: FDA-Public Use
  Company Number: None

PATIENT
  Age: 50 Year
  Sex: Female

DRUGS (3)
  1. STIVARGA [Suspect]
     Indication: COLORECTAL CANCER
     Route: 048
     Dates: start: 20130307
  2. METHADONE [Concomitant]
  3. TEMAZEPAM [Concomitant]

REACTIONS (3)
  - Neutropenia [None]
  - Palmar-plantar erythrodysaesthesia syndrome [None]
  - Myalgia [None]
